FAERS Safety Report 6122700-8 (Version None)
Quarter: 2009Q1

REPORT INFORMATION
  Report Type: 
  Country: None (occurrence: None)
  Receive Date: 20090318
  Receipt Date: 20090310
  Transmission Date: 20090719
  Serious: Yes (Hospitalization)
  Sender: FDA-Public Use
  Company Number: IT-TEVA-186582ISR

PATIENT
  Sex: Male
  Weight: 85 kg

DRUGS (6)
  1. PACLITAXEL [Suspect]
     Indication: NON-SMALL CELL LUNG CANCER
     Dates: start: 20090211, end: 20090225
  2. PACLITAXEL [Concomitant]
  3. CARBOPLATIN [Suspect]
     Indication: NON-SMALL CELL LUNG CANCER
     Route: 042
     Dates: start: 20090211, end: 20090225
  4. CP-751,871 [Suspect]
     Indication: NON-SMALL CELL LUNG CANCER
     Route: 042
     Dates: start: 20090211, end: 20090225
  5. BUPRENORPHINE HCL [Concomitant]
     Dosage: 1 PATCH EVERY 72 HOURS
     Dates: start: 20090206
  6. PREDNISONE [Concomitant]
     Dates: start: 20090206

REACTIONS (1)
  - MYOCARDIAL ISCHAEMIA [None]
